FAERS Safety Report 4986721-0 (Version None)
Quarter: 2006Q2

REPORT INFORMATION
  Report Type: 
  Country: None (occurrence: None)
  Receive Date: 20060428
  Receipt Date: 20051205
  Transmission Date: 20061013
  Serious: Yes (Death, Hospitalization)
  Sender: FDA-Public Use
  Company Number: US-MERCK-0512USA00635

PATIENT
  Age: 43 Year
  Sex: Female
  Weight: 52 kg

DRUGS (30)
  1. VIOXX [Suspect]
     Indication: RHEUMATOID ARTHRITIS
     Route: 048
     Dates: start: 19991228, end: 20040324
  2. PRILOSEC [Concomitant]
     Indication: GASTROOESOPHAGEAL REFLUX DISEASE
     Route: 065
  3. WARFARIN [Concomitant]
     Indication: DEEP VEIN THROMBOSIS
     Route: 065
     Dates: start: 19970101, end: 20040324
  4. WARFARIN [Concomitant]
     Indication: THROMBOSIS
     Route: 065
     Dates: start: 19970101, end: 20040324
  5. PREDNISONE [Concomitant]
     Indication: RHEUMATOID ARTHRITIS
     Route: 065
     Dates: start: 19800101, end: 20040324
  6. PREDNISONE [Concomitant]
     Indication: PAIN
     Route: 065
     Dates: start: 19800101, end: 20040324
  7. SKELAXIN [Concomitant]
     Indication: RHEUMATOID ARTHRITIS
     Route: 065
     Dates: start: 19800101, end: 20040324
  8. SKELAXIN [Concomitant]
     Indication: PAIN
     Route: 065
     Dates: start: 19800101, end: 20040324
  9. PAXIL [Concomitant]
     Indication: GENERALISED ANXIETY DISORDER
     Route: 065
     Dates: start: 20000101, end: 20020101
  10. SOMA [Concomitant]
     Indication: RHEUMATOID ARTHRITIS
     Route: 065
     Dates: start: 19800101, end: 20040324
  11. MYCELEX [Concomitant]
     Route: 065
  12. OXYCONTIN [Concomitant]
     Indication: RHEUMATOID ARTHRITIS
     Route: 065
     Dates: start: 19800101, end: 20040101
  13. OXYCONTIN [Concomitant]
     Indication: PAIN
     Route: 065
     Dates: start: 19800101, end: 20040101
  14. FOSAMAX [Concomitant]
     Indication: RHEUMATOID ARTHRITIS
     Route: 065
  15. TRIAMTERENE [Concomitant]
     Route: 065
  16. ALPRAZOLAM [Concomitant]
     Route: 065
     Dates: start: 19900101, end: 20040324
  17. OMNICEF [Concomitant]
     Route: 065
  18. TOPROL-XL [Concomitant]
     Indication: HYPERTENSION
     Route: 065
     Dates: start: 20040319, end: 20040324
  19. COUMADIN [Concomitant]
     Indication: DEEP VEIN THROMBOSIS
     Route: 065
     Dates: start: 19970101, end: 20040324
  20. COUMADIN [Concomitant]
     Indication: THROMBOSIS
     Route: 065
     Dates: start: 19970101, end: 20040324
  21. MAVIK [Concomitant]
     Indication: HYPERTENSION
     Route: 065
     Dates: start: 20040319, end: 20040324
  22. FUROSEMIDE [Concomitant]
     Route: 065
  23. LEVAQUIN [Concomitant]
     Route: 065
  24. RANITIDINE [Concomitant]
     Route: 048
  25. NEXIUM [Concomitant]
     Indication: GASTROOESOPHAGEAL REFLUX DISEASE
     Route: 065
  26. XANAX [Concomitant]
     Indication: GENERALISED ANXIETY DISORDER
     Route: 065
     Dates: start: 19900101, end: 20040324
  27. CARISOPRODOL [Concomitant]
     Indication: RHEUMATOID ARTHRITIS
     Route: 065
     Dates: start: 19800101, end: 20040324
  28. HYDROCODONE BITARTRATE [Concomitant]
     Indication: RHEUMATOID ARTHRITIS
     Route: 065
     Dates: start: 19800101, end: 20040324
  29. HYDROCODONE BITARTRATE [Concomitant]
     Indication: PAIN
     Route: 065
     Dates: start: 19800101, end: 20040324
  30. NITROQUICK [Concomitant]
     Route: 065

REACTIONS (13)
  - ANGINA UNSTABLE [None]
  - ANIMAL SCRATCH [None]
  - CELLULITIS [None]
  - ESCHAR [None]
  - FACTOR V LEIDEN MUTATION [None]
  - IMPAIRED HEALING [None]
  - OEDEMA PERIPHERAL [None]
  - SKIN ULCER [None]
  - SUDDEN CARDIAC DEATH [None]
  - TINNITUS [None]
  - VASCULAR INSUFFICIENCY [None]
  - VENOUS INSUFFICIENCY [None]
  - VISUAL ACUITY REDUCED [None]
